FAERS Safety Report 7691581-3 (Version None)
Quarter: 2011Q3

REPORT INFORMATION
  Report Type: 
  Country: None (occurrence: None)
  Receive Date: 20110818
  Receipt Date: 20110816
  Transmission Date: 20111222
  Serious: Yes (Death)
  Sender: FDA-Public Use
  Company Number: VE-PFIZER INC-2011183440

PATIENT
  Age: 83 Year
  Sex: Female

DRUGS (3)
  1. BLOKIUM [Concomitant]
     Indication: HYPERTENSION
     Route: 048
  2. LIPITOR [Suspect]
     Dosage: 40 MG, 2X/DAY
     Route: 048
     Dates: start: 20100101
  3. PLAVIX [Concomitant]
     Dosage: 75 MG, UNK
     Route: 048

REACTIONS (1)
  - ACUTE PULMONARY OEDEMA [None]
